FAERS Safety Report 10075825 (Version 2)
Quarter: 2014Q2

REPORT INFORMATION
  Report Type: Spontaneous
  Country: GT (occurrence: GT)
  Receive Date: 20140414
  Receipt Date: 20140521
  Transmission Date: 20141212
  Serious: Yes (Life-Threatening, Other)
  Sender: FDA-Public Use
  Company Number: GT-AMGEN-GTMSP2014026259

PATIENT
  Sex: Female

DRUGS (2)
  1. ENBREL [Suspect]
     Indication: RHEUMATOID ARTHRITIS
     Dosage: 50 MG, Q2WK, EVERY FOURTEEN DAYS
     Route: 058
     Dates: start: 20130906, end: 20140325
  2. ENBREL [Suspect]
     Dosage: UNK, EVERY FOUR WEEKS
     Route: 065

REACTIONS (3)
  - Anaphylactic reaction [Recovered/Resolved]
  - Erythema [Recovered/Resolved]
  - Ecchymosis [Recovered/Resolved]
